FAERS Safety Report 8493461 (Version 2)
Quarter: 2013Q4

REPORT INFORMATION
  Report Type: Report from Study
  Country: IT (occurrence: IT)
  Receive Date: 20120404
  Receipt Date: 20131023
  Transmission Date: 20140711
  Serious: Yes (Death)
  Sender: FDA-Public Use
  Company Number: IT-CELGENEUS-083-21880-12032463

PATIENT
  Age: 81 Year
  Sex: Male
  Weight: 80 kg

DRUGS (15)
  1. REVLIMID [Suspect]
     Indication: ACUTE MYELOID LEUKAEMIA
     Dosage: 10 MILLIGRAM
     Route: 048
  2. CYTARABINE [Suspect]
     Indication: ACUTE MYELOID LEUKAEMIA
     Dosage: 20 MILLIGRAM
     Route: 058
  3. CYTARABINE [Suspect]
     Route: 065
  4. ZYLORIC [Concomitant]
     Indication: BLOOD URIC ACID ABNORMAL
     Route: 048
  5. LEVOFLOXACIN [Concomitant]
     Indication: ANTIBIOTIC THERAPY
     Route: 065
  6. CLIVARINA [Concomitant]
     Indication: THROMBOSIS PROPHYLAXIS
     Dosage: 1750 IU (INTERNATIONAL UNIT)
     Route: 065
  7. MONOKET [Concomitant]
     Indication: CARDIAC DISORDER
     Dosage: 1/3
     Route: 048
  8. LASIX [Concomitant]
     Indication: POLYURIA
     Dosage: 1/3
     Route: 048
  9. LANSOPRAZOLE [Concomitant]
     Indication: PRODUCT USED FOR UNKNOWN INDICATION
     Route: 048
  10. DELTACORTENE [Concomitant]
     Indication: PRODUCT USED FOR UNKNOWN INDICATION
     Route: 048
  11. ISOPTIN [Concomitant]
     Indication: PRODUCT USED FOR UNKNOWN INDICATION
     Route: 048
  12. LUVION [Concomitant]
     Indication: PRODUCT USED FOR UNKNOWN INDICATION
     Route: 048
  13. LANOXIN [Concomitant]
     Indication: PRODUCT USED FOR UNKNOWN INDICATION
     Route: 048
  14. BAMIFIX [Concomitant]
     Indication: PRODUCT USED FOR UNKNOWN INDICATION
     Route: 048
  15. RYTMONORM [Concomitant]
     Indication: PRODUCT USED FOR UNKNOWN INDICATION
     Route: 048

REACTIONS (1)
  - Cardiac arrest [Fatal]
